FAERS Safety Report 6114893-3 (Version None)
Quarter: 2009Q1

REPORT INFORMATION
  Report Type: 
  Country: None (occurrence: None)
  Receive Date: 20090313
  Receipt Date: 20090304
  Transmission Date: 20090719
  Serious: Yes (Hospitalization, Other)
  Sender: FDA-Public Use
  Company Number: PHHY2009BR08134

PATIENT
  Age: 67 Year
  Sex: Female
  Weight: 64 kg

DRUGS (16)
  1. EXELON [Suspect]
     Indication: AMNESIA
     Dosage: 1.5 MG
     Dates: start: 20060101
  2. EXELON [Suspect]
     Dosage: 3 MG
     Dates: end: 20080101
  3. ISOSORBIDE MONONITRATE [Concomitant]
     Indication: CARDIAC DISORDER
     Dosage: 40 MG TID
  4. LOSARTAN POTASSIUM [Concomitant]
     Indication: CARDIAC DISORDER
     Dosage: 50 MG, BID
     Route: 048
  5. AMIODARONE HCL [Concomitant]
     Indication: CARDIAC DISORDER
     Dosage: 200 MG, QD
     Route: 048
  6. DIGOXIN [Concomitant]
     Indication: CARDIAC DISORDER
     Dosage: 0.25 MG, QD
  7. FUROSEMIDE [Concomitant]
     Indication: PULMONARY OEDEMA
     Dosage: 40 MG, TID
     Route: 048
  8. CIPROFIBRATE [Concomitant]
     Indication: BLOOD CHOLESTEROL INCREASED
     Dosage: 100 MG, QD
  9. METFORMIN HCL [Concomitant]
     Indication: DIABETES MELLITUS
     Dosage: 1/2 TAB MIDDLE DAY AND 1/2 TAB AT NIGHT
     Route: 048
  10. ACETYLSALICYLATE [Concomitant]
     Dosage: UNK
     Route: 048
  11. COMBIVENT [Concomitant]
     Indication: ASTHMA
     Dosage: UNK
  12. SERETIDE [Concomitant]
     Indication: ASTHMA
     Dosage: TWICE DAILY
  13. PARACETAMOL [Concomitant]
     Indication: HEADACHE
     Dosage: 700 MG, UNK
  14. CLONAZEPAM [Concomitant]
     Indication: TENSION
     Dosage: 2 MG, UNK
  15. OMEPRAZOLE [Concomitant]
     Indication: ABDOMINAL PAIN UPPER
     Dosage: 20 MG, QD
     Route: 048
  16. REPAGLINIDE [Concomitant]
     Indication: DIABETES MELLITUS

REACTIONS (6)
  - BREAST CANCER [None]
  - BREAST OPERATION [None]
  - FRACTURE [None]
  - OSTEOPOROSIS [None]
  - STRESS [None]
  - THROMBOSIS [None]
